FAERS Safety Report 25074521 (Version 1)
Quarter: 2025Q1

REPORT INFORMATION
  Report Type: Spontaneous
  Country: CN (occurrence: CN)
  Receive Date: 20250313
  Receipt Date: 20250313
  Transmission Date: 20250409
  Serious: Yes (Hospitalization)
  Sender: MYLAN
  Company Number: CN-MYLANLABS-2025M1021697

PATIENT
  Age: 60 Year
  Sex: Female

DRUGS (5)
  1. ATORVASTATIN [Suspect]
     Active Substance: ATORVASTATIN
     Indication: Acute coronary syndrome
     Dosage: 20 MILLIGRAM, HS; ONCE AT NIGHT
  2. ASPIRIN [Suspect]
     Active Substance: ASPIRIN
     Indication: Acute coronary syndrome
     Dosage: 100 MILLIGRAM, QD
  3. TICAGRELOR [Suspect]
     Active Substance: TICAGRELOR
     Indication: Acute coronary syndrome
     Dosage: 90 MILLIGRAM, BID
  4. METOPROLOL TARTRATE [Suspect]
     Active Substance: METOPROLOL TARTRATE
     Indication: Acute coronary syndrome
     Dosage: 6.25 MILLIGRAM, BID
  5. ISOSORBIDE MONONITRATE [Suspect]
     Active Substance: ISOSORBIDE MONONITRATE
     Indication: Acute coronary syndrome
     Dosage: 20 MILLIGRAM, BID

REACTIONS (1)
  - Drug ineffective [Unknown]
